FAERS Safety Report 4807785-0 (Version None)
Quarter: 2005Q4

REPORT INFORMATION
  Report Type: 
  Country: None (occurrence: None)
  Receive Date: 20051020
  Receipt Date: 20051010
  Transmission Date: 20060501
  Serious: Yes (Disabling, Other)
  Sender: FDA-Public Use
  Company Number: 2005130390

PATIENT
  Age: 72 Year
  Sex: Male
  Weight: 81 kg

DRUGS (3)
  1. ATORVASTATIN CALCIUM [Suspect]
     Indication: PROPHYLAXIS
     Dosage: 40 MG (1 IN 1 D), ORAL
     Route: 048
     Dates: start: 20040701, end: 20050101
  2. ENALAPRIL MALEATE [Concomitant]
  3. ASPEGIC 1000 [Concomitant]

REACTIONS (6)
  - GAIT DISTURBANCE [None]
  - HAEMATOMA [None]
  - MUSCLE HAEMORRHAGE [None]
  - MUSCLE RUPTURE [None]
  - OEDEMA [None]
  - TENDON RUPTURE [None]
